FAERS Safety Report 25521451 (Version 1)
Quarter: 2025Q3

REPORT INFORMATION
  Report Type: Spontaneous
  Country: AU (occurrence: AU)
  Receive Date: 20250706
  Receipt Date: 20250706
  Transmission Date: 20251021
  Serious: Yes (Hospitalization)
  Sender: SUVEN PHARMACEUTICALS LIMITED
  Company Number: AU-Suven-000029

PATIENT
  Age: 4 Decade
  Sex: Female

DRUGS (1)
  1. GLYCOPYRROLATE [Suspect]
     Active Substance: GLYCOPYRROLATE
     Indication: Bradycardia

REACTIONS (2)
  - Stress cardiomyopathy [Unknown]
  - Maternal exposure during delivery [Unknown]
